FAERS Safety Report 8834402 (Version 2)
Quarter: 2012Q4

REPORT INFORMATION
  Report Type: 
  Country: US (occurrence: US)
  Receive Date: 20121010
  Receipt Date: 20121113
  Transmission Date: 20130627
  Serious: No
  Sender: FDA-Public Use
  Company Number: US-TEVA-363079USA

PATIENT
  Sex: Female
  Weight: 77.18 kg

DRUGS (2)
  1. QNASL [Suspect]
     Indication: SINUSITIS
     Dosage: 320 Microgram Daily; 2 sprays each nostril
     Route: 045
     Dates: start: 201207
  2. PREDNISONE [Concomitant]
     Indication: SINUSITIS
     Dosage: 3 tabs x 2 days, 2 tabs x 2 days,1 tab x 2 days
     Route: 048
     Dates: start: 201207

REACTIONS (2)
  - Ageusia [Recovered/Resolved]
  - Anosmia [Recovered/Resolved]
